FAERS Safety Report 16786539 (Version 1)
Quarter: 2019Q3

REPORT INFORMATION
  Report Type: Spontaneous
  Country: US (occurrence: US)
  Receive Date: 20190909
  Receipt Date: 20190909
  Transmission Date: 20191005
  Serious: Yes (Other)
  Sender: FDA-Public Use
  Company Number: US-MYLANLABS-2019M1082842

PATIENT
  Age: 46 Year
  Sex: Female

DRUGS (1)
  1. MIDODRINE [Suspect]
     Active Substance: MIDODRINE
     Indication: PRODUCT USED FOR UNKNOWN INDICATION
     Dosage: INGESTED 40-50 TABLETS
     Route: 048

REACTIONS (5)
  - Intentional overdose [Unknown]
  - Chest pain [Unknown]
  - Nodal arrhythmia [Unknown]
  - Headache [Unknown]
  - Hypertension [Unknown]
